FAERS Safety Report 6306775-9 (Version None)
Quarter: 2009Q3

REPORT INFORMATION
  Report Type: 
  Country: None (occurrence: None)
  Receive Date: 20090810
  Receipt Date: 20090727
  Transmission Date: 20100115
  Serious: Yes (Death, Hospitalization, Other)
  Sender: FDA-Public Use
  Company Number: 2009-00499

PATIENT
  Age: 67 Year
  Sex: Female
  Weight: 45 kg

DRUGS (3)
  1. VELCADE [Suspect]
     Indication: MULTIPLE MYELOMA
     Dosage: 1.8 MG, INTRAVENOUS ; 1.4 MG, INTRAVENOUS ; 1 MG, INTRAVENOUS
     Route: 042
     Dates: start: 20081014, end: 20081024
  2. VELCADE [Suspect]
     Indication: MULTIPLE MYELOMA
     Dosage: 1.8 MG, INTRAVENOUS ; 1.4 MG, INTRAVENOUS ; 1 MG, INTRAVENOUS
     Route: 042
     Dates: start: 20081110, end: 20081208
  3. VELCADE [Suspect]
     Indication: MULTIPLE MYELOMA
     Dosage: 1.8 MG, INTRAVENOUS ; 1.4 MG, INTRAVENOUS ; 1 MG, INTRAVENOUS
     Route: 042
     Dates: start: 20090108, end: 20090115

REACTIONS (11)
  - ASPIRATION [None]
  - CYTOMEGALOVIRUS INFECTION [None]
  - DECREASED APPETITE [None]
  - DYSPHAGIA [None]
  - HYDRONEPHROSIS [None]
  - HYPOPHAGIA [None]
  - ILEUS [None]
  - MALIGNANT NEOPLASM PROGRESSION [None]
  - NEUROPATHY PERIPHERAL [None]
  - PLATELET COUNT DECREASED [None]
  - RENAL FAILURE [None]
